FAERS Safety Report 9774778 (Version 1)
Quarter: 2013Q4

REPORT INFORMATION
  Report Type: Spontaneous
  Country: RU (occurrence: RU)
  Receive Date: 20131220
  Receipt Date: 20131220
  Transmission Date: 20140711
  Serious: Yes (Life-Threatening, Other)
  Sender: FDA-Public Use
  Company Number: RU-ROCHE-1321983

PATIENT
  Age: 45 Year
  Sex: Male

DRUGS (9)
  1. MABTHERA [Suspect]
     Indication: MANTLE CELL LYMPHOMA
     Route: 065
  2. DEXAMETHASONE [Suspect]
     Indication: MANTLE CELL LYMPHOMA
     Route: 065
  3. CYCLOPHOSPHAMIDE [Suspect]
     Indication: MANTLE CELL LYMPHOMA
     Route: 065
  4. VINCRISTINE [Suspect]
     Indication: MANTLE CELL LYMPHOMA
     Route: 065
  5. DOXORUBICIN [Suspect]
     Indication: MANTLE CELL LYMPHOMA
     Route: 065
  6. METHOTREXATE [Suspect]
     Indication: MANTLE CELL LYMPHOMA
     Route: 065
  7. CYTOSAR [Suspect]
     Indication: MANTLE CELL LYMPHOMA
     Route: 065
  8. BORTEZOMIB [Concomitant]
     Indication: MANTLE CELL LYMPHOMA
  9. BENDAMUSTINE [Concomitant]
     Indication: MANTLE CELL LYMPHOMA

REACTIONS (11)
  - Escherichia sepsis [Unknown]
  - Tumour lysis syndrome [Unknown]
  - Peritoneal perforation [Unknown]
  - Gastrointestinal haemorrhage [Unknown]
  - Neutropenia [Unknown]
  - Anaemia [Unknown]
  - Thrombocytopenia [Unknown]
  - Mucosal inflammation [Unknown]
  - Febrile neutropenia [Unknown]
  - Stomatitis [Unknown]
  - Drug ineffective [Unknown]
